FAERS Safety Report 8067801 (Version 7)
Quarter: 2013Q4

REPORT INFORMATION
  Report Type: Report from Study
  Country: US (occurrence: US)
  Receive Date: 20110803
  Receipt Date: 20131213
  Transmission Date: 20140711
  Serious: Yes (Hospitalization, Other)
  Sender: FDA-Public Use
  Company Number: PHHY2011US07049

PATIENT
  Age: 63 Year
  Sex: Male
  Weight: 89.34 kg

DRUGS (8)
  1. TASIGNA [Suspect]
     Indication: CHRONIC MYELOID LEUKAEMIA
     Dosage: 150 MG, QD
     Route: 048
     Dates: start: 20110124
  2. AMLODIPINE [Concomitant]
  3. RAMIPRIL [Concomitant]
  4. ZOCOR [Concomitant]
     Dosage: UNK UKN, UNK
  5. NORVASC [Concomitant]
     Dosage: UNK UKN, UNK
  6. BENICAR [Concomitant]
     Dosage: UNK UKN, UNK
  7. ULORIC [Concomitant]
     Dosage: UNK UKN, UNK
  8. VITAMIN D [Concomitant]
     Dosage: UNK UKN, UNK

REACTIONS (22)
  - Dehydration [Recovering/Resolving]
  - Cardiac failure congestive [Recovering/Resolving]
  - Chest pain [Recovering/Resolving]
  - Sepsis [Recovering/Resolving]
  - Atrial fibrillation [Recovering/Resolving]
  - Pneumonia [Recovering/Resolving]
  - Fluid overload [Recovering/Resolving]
  - Tendonitis [Unknown]
  - Abasia [Recovering/Resolving]
  - Pain in extremity [Unknown]
  - Renal artery stenosis [Unknown]
  - Oesophagitis [Recovering/Resolving]
  - Pyrexia [Recovering/Resolving]
  - Weight decreased [Recovering/Resolving]
  - Gastritis [Recovering/Resolving]
  - Hyperthyroidism [Recovered/Resolved]
  - Hypothyroidism [Recovered/Resolved]
  - Blood thyroid stimulating hormone increased [Recovered/Resolved]
  - Alopecia [Not Recovered/Not Resolved]
  - Muscle spasms [Recovering/Resolving]
  - Rash [Recovering/Resolving]
  - Abdominal pain upper [Not Recovered/Not Resolved]
